FAERS Safety Report 8031234-5 (Version None)
Quarter: 2012Q1

REPORT INFORMATION
  Report Type: 
  Country: None (occurrence: None)
  Receive Date: 20120109
  Receipt Date: 20120105
  Transmission Date: 20120608
  Serious: Yes (Hospitalization, Disabling, Other)
  Sender: FDA-Public Use
  Company Number: US-MERCK-1108USA01227

PATIENT
  Sex: Female

DRUGS (2)
  1. FOSAMAX [Suspect]
     Indication: OSTEOPOROSIS
     Route: 048
     Dates: end: 20090601
  2. HORMONES (UNSPECIFIED) [Concomitant]
     Route: 065
     Dates: start: 19970101

REACTIONS (5)
  - DEVICE MALFUNCTION [None]
  - FALL [None]
  - FEMUR FRACTURE [None]
  - VENOUS INSUFFICIENCY [None]
  - PELVIC FRACTURE [None]
